FAERS Safety Report 9766120 (Version 1)
Quarter: 2013Q4

REPORT INFORMATION
  Report Type: Spontaneous
  Country: US (occurrence: US)
  Receive Date: 20131217
  Receipt Date: 20131217
  Transmission Date: 20140711
  Serious: No
  Sender: FDA-Public Use
  Company Number: US-GLAXOSMITHKLINE-A1019301A

PATIENT
  Age: 67 Year
  Sex: Female

DRUGS (1)
  1. VOTRIENT [Suspect]
     Indication: SARCOMA
     Dosage: 800MG PER DAY
     Route: 048

REACTIONS (4)
  - Blood pressure increased [Unknown]
  - Fatigue [Unknown]
  - Hair colour changes [Unknown]
  - Hypertension [Unknown]
